FAERS Safety Report 8078078-6 (Version None)
Quarter: 2012Q1

REPORT INFORMATION
  Report Type: 
  Country: None (occurrence: None)
  Receive Date: 20120127
  Receipt Date: 20110107
  Transmission Date: 20120608
  Serious: No
  Sender: FDA-Public Use
  Company Number: US-ABBOTT-11P-163-0696082-00

PATIENT
  Sex: Female

DRUGS (3)
  1. HUMIRA [Suspect]
     Indication: CROHN'S DISEASE
  2. AZATHIOPRINE [Concomitant]
     Indication: CROHN'S DISEASE
  3. PREDNISONE [Concomitant]
     Indication: CROHN'S DISEASE

REACTIONS (3)
  - MYALGIA [None]
  - PAIN OF SKIN [None]
  - ARTHRALGIA [None]
